FAERS Safety Report 9147511 (Version 1)
Quarter: 2013Q1

REPORT INFORMATION
  Report Type: Spontaneous
  Country: US (occurrence: US)
  Receive Date: 20130307
  Receipt Date: 20130307
  Transmission Date: 20140127
  Serious: No
  Sender: FDA-Public Use
  Company Number: US-B.I. PHARMACEUTICALS,INC./RIDGEFIELD-2013-BI-05789BP

PATIENT
  Age: 63 None
  Sex: Female
  Weight: 79 kg

DRUGS (5)
  1. SPIRIVA [Suspect]
     Indication: CHRONIC OBSTRUCTIVE PULMONARY DISEASE
     Dosage: 18 MCG
     Route: 055
     Dates: start: 2011
  2. SPIRIVA [Suspect]
     Route: 048
     Dates: start: 20130228, end: 20130228
  3. THYROID PILL [Concomitant]
  4. ADVAIR [Concomitant]
     Indication: CHRONIC OBSTRUCTIVE PULMONARY DISEASE
     Dates: start: 2011
  5. INSULIN [Concomitant]
     Indication: DIABETES MELLITUS
     Dates: start: 1986

REACTIONS (3)
  - Visual acuity reduced [Not Recovered/Not Resolved]
  - Hyperchlorhydria [Recovered/Resolved]
  - Incorrect route of drug administration [Recovered/Resolved]
